FAERS Safety Report 24208067 (Version 1)
Quarter: 2024Q3

REPORT INFORMATION
  Report Type: Spontaneous
  Country: FR (occurrence: FR)
  Receive Date: 20240814
  Receipt Date: 20240814
  Transmission Date: 20241016
  Serious: Yes (Life-Threatening, Hospitalization)
  Sender: UCB
  Company Number: None

PATIENT
  Age: 57 Year
  Sex: Female
  Weight: 51.2 kg

DRUGS (5)
  1. KEPPRA [Suspect]
     Active Substance: LEVETIRACETAM
     Indication: Epilepsy
     Dosage: 1500 MILLIGRAM, ONCE DAILY (QD), 750 MG, TWICE PER DAY
     Route: 048
     Dates: start: 20240208, end: 20240226
  2. VALPROATE SODIUM [Suspect]
     Active Substance: VALPROATE SODIUM
     Indication: Epilepsy
     Dosage: 500 MILLIGRAM, 2X/DAY (BID)
     Route: 048
     Dates: start: 20240208, end: 20240226
  3. CLOBAZAM [Suspect]
     Active Substance: CLOBAZAM
     Indication: Epilepsy
     Dosage: 10 MILLIGRAM, DAILY
     Route: 048
     Dates: start: 20240208, end: 20240212
  4. TAZOBACTAM [Suspect]
     Active Substance: TAZOBACTAM
     Indication: Pneumonia aspiration
     Dosage: 4 GRAM, 3X/DAY (TID)
     Route: 042
     Dates: start: 20240209, end: 20240217
  5. PIPERACILLIN SODIUM [Suspect]
     Active Substance: PIPERACILLIN SODIUM
     Indication: Pneumonia aspiration
     Dosage: 4 MILLIGRAM, 3X/DAY (TID)
     Route: 042
     Dates: start: 20240209, end: 20240217

REACTIONS (1)
  - Autoimmune haemolytic anaemia [Recovered/Resolved]

NARRATIVE: CASE EVENT DATE: 20240220
